FAERS Safety Report 9014285 (Version 1)
Quarter: 2013Q1

REPORT INFORMATION
  Report Type: Report from Study
  Country: US (occurrence: US)
  Receive Date: 20130115
  Receipt Date: 20130115
  Transmission Date: 20140127
  Serious: Yes (Other)
  Sender: FDA-Public Use
  Company Number: US-AMGEN-KDC420282

PATIENT
  Age: 56 Year
  Sex: Male

DRUGS (1)
  1. ETANERCEPT [Suspect]
     Indication: PSORIASIS
     Dosage: UNK UNK, QWK
     Route: 058
     Dates: start: 20061024

REACTIONS (1)
  - Tuberculin test positive [Recovered/Resolved]
